FAERS Safety Report 5822060-3 (Version None)
Quarter: 2008Q3

REPORT INFORMATION
  Report Type: 
  Country: None (occurrence: None)
  Receive Date: 20080722
  Receipt Date: 20080722
  Transmission Date: 20090109
  Serious: Yes (Life-Threatening)
  Sender: FDA-Public Use
  Company Number: None

PATIENT
  Age: 29 Year
  Sex: Male
  Weight: 73.4827 kg

DRUGS (2)
  1. TRICOR [Suspect]
     Indication: BLOOD CHOLESTEROL INCREASED
     Dosage: 145 HS PO
     Route: 048
     Dates: start: 20070810, end: 20080710
  2. TRICOR [Suspect]
     Indication: CARDIAC DISORDER
     Dosage: 145 HS PO
     Route: 048
     Dates: start: 20070810, end: 20080710

REACTIONS (9)
  - ABDOMINAL PAIN UPPER [None]
  - ACTIVITIES OF DAILY LIVING IMPAIRED [None]
  - BLOOD IRON DECREASED [None]
  - BLOOD POTASSIUM DECREASED [None]
  - CONVULSION [None]
  - HEPATIC ENZYME INCREASED [None]
  - REFUSAL OF TREATMENT BY PATIENT [None]
  - RENAL FAILURE [None]
  - RHABDOMYOLYSIS [None]
